FAERS Safety Report 13622260 (Version 1)
Quarter: 2017Q2

REPORT INFORMATION
  Report Type: Spontaneous
  Country: US (occurrence: US)
  Receive Date: 20170607
  Receipt Date: 20170607
  Transmission Date: 20170830
  Serious: No
  Sender: FDA-Public Use
  Company Number: US-ROCHE-1814729

PATIENT
  Sex: Female

DRUGS (4)
  1. ENALAPRIL [Concomitant]
     Active Substance: ENALAPRIL
  2. XELODA [Suspect]
     Active Substance: CAPECITABINE
     Indication: PRODUCT USED FOR UNKNOWN INDICATION
     Route: 048
     Dates: start: 20160625
  3. XGEVA [Concomitant]
     Active Substance: DENOSUMAB
  4. CARVEDILOL. [Concomitant]
     Active Substance: CARVEDILOL

REACTIONS (6)
  - Decreased appetite [Unknown]
  - Bone pain [Unknown]
  - Arthralgia [Unknown]
  - Neuropathy peripheral [Unknown]
  - Skin discolouration [Unknown]
  - Nausea [Unknown]
